FAERS Safety Report 9679050 (Version 3)
Quarter: 2013Q4

REPORT INFORMATION
  Report Type: Spontaneous
  Country: JP (occurrence: JP)
  Receive Date: 20131108
  Receipt Date: 20131218
  Transmission Date: 20140711
  Serious: Yes (Congenital Anomaly)
  Sender: FDA-Public Use
  Company Number: JP-UCBSA-102372

PATIENT
  Age: 20 Year
  Sex: Male

DRUGS (1)
  1. E KEPPRA [Suspect]
     Route: 048

REACTIONS (1)
  - Ileus paralytic [Recovered/Resolved]
